FAERS Safety Report 7902653 (Version 3)
Quarter: 2013Q2

REPORT INFORMATION
  Report Type: Spontaneous
  Country: US (occurrence: US)
  Receive Date: 20110418
  Receipt Date: 20130617
  Transmission Date: 20140414
  Serious: Yes (Other)
  Sender: FDA-Public Use
  Company Number: US-ROCHE-751885

PATIENT
  Age: 40 Year
  Sex: Female
  Weight: 61.2 kg

DRUGS (4)
  1. ACCUTANE [Suspect]
     Indication: ACNE
     Route: 065
     Dates: start: 199603, end: 19961225
  2. ACCUTANE [Suspect]
     Route: 065
     Dates: start: 19970311, end: 19970402
  3. SELENIUM SULFIDE [Concomitant]
  4. ORTHO-NOVUM [Concomitant]
     Indication: CONTRACEPTION

REACTIONS (5)
  - Colitis ulcerative [Unknown]
  - Haemorrhoids [Unknown]
  - Depressed mood [Unknown]
  - Irritable bowel syndrome [Unknown]
  - Arthralgia [Recovered/Resolved]
